FAERS Safety Report 7062604 (Version 13)
Quarter: 2013Q3

REPORT INFORMATION
  Report Type: Spontaneous
  Country: US (occurrence: US)
  Receive Date: 20090724
  Receipt Date: 20130731
  Transmission Date: 20140515
  Serious: Yes (Other)
  Sender: FDA-Public Use
  Company Number: PHEH2009US07546

PATIENT
  Sex: Female

DRUGS (22)
  1. ZOMETA [Suspect]
     Indication: METASTASES TO BONE
     Dosage: 4 MG, QMO
     Dates: start: 20060629, end: 200803
  2. ZOMETA [Suspect]
     Indication: METASTASES TO BREAST
  3. ARIMIDEX ^ASTRAZENECA^ [Concomitant]
     Indication: BREAST CANCER
  4. PERCOCET [Concomitant]
  5. TYLENOL [Concomitant]
  6. LEVOTHYROXINE [Concomitant]
  7. EFFEXOR [Concomitant]
  8. ALEVE                              /00256202/ [Concomitant]
  9. ATENOLOL [Concomitant]
  10. VITAMIN D [Concomitant]
  11. LIPITOR [Concomitant]
  12. PRILOSEC [Concomitant]
     Dosage: 20 MG, QD
  13. Z-PAK [Concomitant]
  14. AMITRIPTYLINE [Concomitant]
     Dosage: 10 MG, QHS
     Route: 048
  15. VICODIN [Concomitant]
  16. SIMVASTATIN [Concomitant]
     Dosage: 20 MG, UNK
  17. ZITHROMAX [Concomitant]
     Dosage: 250 MG, QD
  18. MEDROL [Concomitant]
     Dosage: 4 MG, QD
     Route: 048
  19. ZOFRAN [Concomitant]
  20. DECADRON [Concomitant]
  21. ATIVAN [Concomitant]
  22. ABRAXANE [Concomitant]

REACTIONS (80)
  - Osteonecrosis of jaw [Unknown]
  - Injury [Unknown]
  - Disability [Unknown]
  - Pain [Unknown]
  - Anxiety [Unknown]
  - Anhedonia [Unknown]
  - Fatigue [Unknown]
  - Lymphadenopathy [Unknown]
  - Upper respiratory tract infection [Unknown]
  - Productive cough [Unknown]
  - Wheezing [Unknown]
  - Hot flush [Unknown]
  - Bone pain [Unknown]
  - Spinal osteoarthritis [Unknown]
  - Ear pain [Unknown]
  - Loose tooth [Unknown]
  - Swelling face [Unknown]
  - Cellulitis [Unknown]
  - Oropharyngeal pain [Unknown]
  - Rhinorrhoea [Unknown]
  - Swelling [Unknown]
  - Osteoarthritis [Unknown]
  - Bone cyst [Unknown]
  - Periodontal disease [Unknown]
  - Toothache [Unknown]
  - Hypoaesthesia [Unknown]
  - Osteoporosis [Unknown]
  - Exposed bone in jaw [Unknown]
  - Arthralgia [Unknown]
  - Hyperlipidaemia [Unknown]
  - Osteomyelitis [Unknown]
  - Pain in jaw [Not Recovered/Not Resolved]
  - Hepatic steatosis [Unknown]
  - Depression [Unknown]
  - Abdominal discomfort [Unknown]
  - Diverticulum [Unknown]
  - Neoplasm progression [Unknown]
  - Malignant neoplasm progression [Unknown]
  - Adrenal mass [Unknown]
  - Intervertebral disc degeneration [Unknown]
  - Tendonitis [Unknown]
  - Demyelination [Unknown]
  - Gliosis [Unknown]
  - Ischaemia [Unknown]
  - Metastases to spine [Unknown]
  - Metastases to pelvis [Unknown]
  - Metastases to liver [Unknown]
  - Nail infection [Unknown]
  - Paronychia [Unknown]
  - Bronchitis [Unknown]
  - Temporomandibular joint syndrome [Unknown]
  - Acute sinusitis [Unknown]
  - Back pain [Unknown]
  - Memory impairment [Unknown]
  - Asthma [Unknown]
  - Chronic obstructive pulmonary disease [Unknown]
  - Musculoskeletal pain [Unknown]
  - Thrombophlebitis [Unknown]
  - Pharyngitis [Unknown]
  - Decreased appetite [Unknown]
  - Tooth fracture [Unknown]
  - Dental caries [Unknown]
  - Chest pain [Unknown]
  - Pain in extremity [Unknown]
  - Neuropathy peripheral [Unknown]
  - Spinal column stenosis [Unknown]
  - Lip pain [Unknown]
  - Dysphagia [Unknown]
  - Mucosal inflammation [Unknown]
  - Orthopnoea [Unknown]
  - Odynophagia [Unknown]
  - Tachycardia [Unknown]
  - Stomatitis [Unknown]
  - Thrombocytopenia [Unknown]
  - Pancytopenia [Unknown]
  - Cachexia [Unknown]
  - Bone marrow failure [Unknown]
  - Trismus [Unknown]
  - Osteosclerosis [Unknown]
  - Neutropenia [Unknown]
